FAERS Safety Report 9431784 (Version 1)
Quarter: 2013Q3

REPORT INFORMATION
  Report Type: Spontaneous
  Country: US (occurrence: None)
  Receive Date: 20130726
  Receipt Date: 20130726
  Transmission Date: 20140515
  Serious: Yes (Other)
  Sender: FDA-Public Use
  Company Number: FK201302642

PATIENT
  Age: 83 Year
  Sex: Male

DRUGS (11)
  1. HEPARIN [Suspect]
     Indication: PULMONARY EMBOLISM
     Route: 040
  2. ASPIRIN (ACETYLSALICYLIC ACID) [Suspect]
     Indication: PULMONARY EMBOLISM
  3. COUMADIN (WARFARIN) [Concomitant]
  4. FLUTICASONE PROPIONATE (FLUTICASONE PROPIONATE) [Concomitant]
  5. FUROSEMIDE (FUROSEMIDE) [Concomitant]
  6. HYDRALAZINE HYDROCHLORIDE (HYDRALAZINE HYROCHLORIDE) [Concomitant]
  7. ISOSORBIDE DINITRATE (ISOSORBIDE DINITRATE) [Concomitant]
  8. LEVOTHYROXINE SODIUM (LEVOTHYROXINE SODIUM) [Concomitant]
  9. METOPROLOL SUCCINATE (METOPROLOL SUCCINATE) [Concomitant]
  10. SIMVASTATIN (SIMVASTATIN) [Concomitant]
  11. TIOTROPIUM BROMIDE (TIOTROPIUM BROMIDE) [Concomitant]

REACTIONS (5)
  - Dermatitis bullous [None]
  - Purpura [None]
  - Platelet count decreased [None]
  - Blood creatinine increased [None]
  - Haemoglobin decreased [None]
